FAERS Safety Report 17193262 (Version 2)
Quarter: 2019Q4

REPORT INFORMATION
  Report Type: Spontaneous
  Country: US (occurrence: US)
  Receive Date: 20191223
  Receipt Date: 20191231
  Transmission Date: 20200122
  Serious: Yes (Hospitalization, Other)
  Sender: FDA-Public Use
  Company Number: US-SHIRE-US201944416

PATIENT
  Age: 60 Year
  Sex: Female
  Weight: 60 kg

DRUGS (3)
  1. GATTEX [Suspect]
     Active Substance: TEDUGLUTIDE\WATER
     Dosage: UNK
     Route: 065
     Dates: start: 20191225
  2. GATTEX [Suspect]
     Active Substance: TEDUGLUTIDE\WATER
     Indication: PRODUCT USED FOR UNKNOWN INDICATION
     Dosage: 0.3 UNIT UNKNOWN, UNK
     Route: 058
     Dates: start: 20151106
  3. GATTEX [Suspect]
     Active Substance: TEDUGLUTIDE\WATER
     Dosage: 0.3 UNIT UNKNOWN, 1X/DAY:QD
     Route: 065
     Dates: start: 20191029, end: 20191215

REACTIONS (3)
  - Product dose omission [Recovered/Resolved]
  - Infection [Recovered/Resolved]
  - Product distribution issue [Recovered/Resolved]

NARRATIVE: CASE EVENT DATE: 20191215
